FAERS Safety Report 13761938 (Version 1)
Quarter: 2017Q3

REPORT INFORMATION
  Report Type: Spontaneous
  Country: US (occurrence: US)
  Receive Date: 20170718
  Receipt Date: 20170718
  Transmission Date: 20171127
  Serious: Yes (Hospitalization)
  Sender: FDA-Public Use
  Company Number: US-ASTRAZENECA-2015SF17587

PATIENT
  Age: 72 Year
  Sex: Male
  Weight: 87.1 kg

DRUGS (12)
  1. ROFLUMILAST. [Suspect]
     Active Substance: ROFLUMILAST
     Indication: CHRONIC OBSTRUCTIVE PULMONARY DISEASE
     Route: 048
     Dates: start: 20170410
  2. LEVOTHYROXINE. [Concomitant]
     Active Substance: LEVOTHYROXINE
  3. ALBUTEROL. [Concomitant]
     Active Substance: ALBUTEROL
     Dosage: PNR
     Route: 055
  4. PROAIR HFA [Concomitant]
     Active Substance: ALBUTEROL SULFATE
     Dosage: 1-2 PUFFS EVERY FOUR HOURS AS NEEDED:
  5. ADVAIR HFA [Concomitant]
     Active Substance: FLUTICASONE PROPIONATE\SALMETEROL XINAFOATE
     Indication: CHRONIC OBSTRUCTIVE PULMONARY DISEASE
     Dosage: 500/50 MCG TWICE DAILY:
     Route: 055
  6. ASPIRIN. [Concomitant]
     Active Substance: ASPIRIN
  7. SINGULAIR [Concomitant]
     Active Substance: MONTELUKAST SODIUM
     Indication: CHRONIC OBSTRUCTIVE PULMONARY DISEASE
  8. CLARINEX [Concomitant]
     Active Substance: DESLORATADINE
  9. ROFLUMILAST. [Suspect]
     Active Substance: ROFLUMILAST
     Indication: CHRONIC OBSTRUCTIVE PULMONARY DISEASE
     Route: 048
     Dates: start: 20110711
  10. SPIRIVA [Concomitant]
     Active Substance: TIOTROPIUM BROMIDE MONOHYDRATE
     Dosage: 1 PUFF DAILY: DAILY
  11. SYMBICORT [Suspect]
     Active Substance: BUDESONIDE\FORMOTEROL FUMARATE DIHYDRATE
     Dosage: 160 4.5 MCG ONE PUFF TWICE A DAY
     Route: 055
  12. FUROSEMIDE. [Concomitant]
     Active Substance: FUROSEMIDE

REACTIONS (9)
  - Atrial tachycardia [Unknown]
  - Supraventricular tachycardia [Unknown]
  - Ventricular extrasystoles [Unknown]
  - Arthropathy [Not Recovered/Not Resolved]
  - Dyspepsia [Unknown]
  - Arthralgia [Not Recovered/Not Resolved]
  - Off label use [Unknown]
  - Musculoskeletal pain [Recovered/Resolved]
  - Sleep disorder [Not Recovered/Not Resolved]

NARRATIVE: CASE EVENT DATE: 2011
